FAERS Safety Report 6608136-1 (Version None)
Quarter: 2010Q1

REPORT INFORMATION
  Report Type: 
  Country: None (occurrence: None)
  Receive Date: 20100301
  Receipt Date: 20100217
  Transmission Date: 20100710
  Serious: Yes (Other)
  Sender: FDA-Public Use
  Company Number: GB-BRISTOL-MYERS SQUIBB COMPANY-14981708

PATIENT
  Age: 29 Year
  Sex: Female
  Weight: 88 kg

DRUGS (2)
  1. DASATINIB [Suspect]
     Indication: CHRONIC MYELOID LEUKAEMIA
     Route: 048
     Dates: start: 20090301, end: 20100101
  2. OMEPRAZOLE [Concomitant]

REACTIONS (2)
  - HYPERKERATOSIS [None]
  - HYPERKERATOSIS PALMARIS AND PLANTARIS [None]
